FAERS Safety Report 15049512 (Version 1)
Quarter: 2018Q2

REPORT INFORMATION
  Report Type: Spontaneous
  Country: US (occurrence: US)
  Receive Date: 20180622
  Receipt Date: 20180622
  Transmission Date: 20180711
  Serious: No
  Sender: FDA-Public Use
  Company Number: US-TEVA-2018-US-901603

PATIENT
  Sex: Female

DRUGS (6)
  1. NAPROXEN. [Concomitant]
     Active Substance: NAPROXEN
  2. METHOTREXATE. [Concomitant]
     Active Substance: METHOTREXATE
     Indication: RHEUMATOID ARTHRITIS
  3. LANSOPRAZOLE. [Suspect]
     Active Substance: LANSOPRAZOLE
     Indication: SECRETION DISCHARGE
     Dosage: DOSE STRENGTH: 15 (UNIT NOT REPORTED)
  4. PLAQUENIL [Concomitant]
     Active Substance: HYDROXYCHLOROQUINE SULFATE
  5. PREDNISONE. [Concomitant]
     Active Substance: PREDNISONE
  6. SULFASALAZINE. [Concomitant]
     Active Substance: SULFASALAZINE

REACTIONS (4)
  - Drug interaction [Unknown]
  - Secretion discharge [Unknown]
  - Drug prescribing error [Unknown]
  - Mass [Unknown]
